FAERS Safety Report 4790309-4 (Version None)
Quarter: 2005Q4

REPORT INFORMATION
  Report Type: 
  Country: None (occurrence: None)
  Receive Date: 20051005
  Receipt Date: 20051005
  Transmission Date: 20060501
  Serious: Yes (Life-Threatening, Hospitalization)
  Sender: FDA-Public Use
  Company Number: None

PATIENT
  Age: 68 Year
  Sex: Male

DRUGS (13)
  1. HEPARIN [Suspect]
     Indication: MYOCARDIAL INFARCTION
     Dosage: SEE IMAGE
     Route: 042
  2. CEFEPIME [Concomitant]
  3. CLOPIDOGREL [Concomitant]
  4. DIPHENHYDRAMINE HCL [Concomitant]
  5. DOCUSATE [Concomitant]
  6. FENTANYL [Concomitant]
  7. FLUCONAZOLE [Concomitant]
  8. GENTAMICIN [Concomitant]
  9. LANSOPRAZOLE [Concomitant]
  10. MORPHINE [Concomitant]
  11. OXYCODONE HCL [Concomitant]
  12. APAP TAB [Concomitant]
  13. VANCOMYCIN [Concomitant]

REACTIONS (1)
  - HEPARIN-INDUCED THROMBOCYTOPENIA [None]
